FAERS Safety Report 4969423-6 (Version None)
Quarter: 2006Q2

REPORT INFORMATION
  Report Type: 
  Country: None (occurrence: None)
  Receive Date: 20060405
  Receipt Date: 20060321
  Transmission Date: 20061013
  Serious: Yes (Hospitalization, Other)
  Sender: FDA-Public Use
  Company Number: 2006AL000822

PATIENT
  Age: 41 Year
  Sex: Female
  Weight: 68.0396 kg

DRUGS (21)
  1. CLONAZEPAM TABLETS USP, 1 MG (PUREPAC) [Suspect]
     Dosage: 1 MG; HS; PO
     Route: 048
  2. ALPRAZOLAM [Suspect]
     Dosage: 0.25 MG; PRN; PO
     Route: 048
  3. FENTANYL TRANSDERMAL SYSTEM [Suspect]
     Dosage: 50 UG; QH; TDER
     Route: 062
  4. DULOXETINE [Concomitant]
  5. PARACETAMOL [Concomitant]
  6. DICHLORALPHENAZONE [Concomitant]
  7. ISOMETHEPTENE [Concomitant]
  8. ACETOMINOPHEN/HYDROCODONE BITARTRATE [Concomitant]
  9. PANTOPRAZOLE [Concomitant]
  10. QUETIAPINE FUMARATE [Concomitant]
  11. METOPROLOL SUCCINATE [Concomitant]
  12. FERROUS SULFATE TAB [Concomitant]
  13. FERROUS SULFATE/VITAMINS [Concomitant]
  14. VITAMINS [Concomitant]
  15. SEASONALE CONTRACEPTIVE [Concomitant]
  16. HYOSCINE HBR HYT [Concomitant]
  17. MODAFINIL [Concomitant]
  18. TOPIRAMATE [Concomitant]
  19. AZELASTINE HYDROCHLORIDE [Concomitant]
  20. CALCIUM GLUCONATE [Concomitant]
  21. ATROPINE SULFATE/DIPHENOXYLATE HYDROCHLORIDE [Concomitant]

REACTIONS (14)
  - AMNESIA [None]
  - APPLICATION SITE ERYTHEMA [None]
  - BLOOD ALCOHOL INCREASED [None]
  - CONFUSIONAL STATE [None]
  - DISTURBANCE IN ATTENTION [None]
  - DIZZINESS [None]
  - DRUG ABUSER [None]
  - DRUG SCREEN POSITIVE [None]
  - FALL [None]
  - HEAD INJURY [None]
  - HEADACHE [None]
  - HYPERHIDROSIS [None]
  - MASS [None]
  - NAUSEA [None]
